FAERS Safety Report 15659273 (Version 1)
Quarter: 2018Q4

REPORT INFORMATION
  Report Type: Spontaneous
  Country: US (occurrence: US)
  Receive Date: 20181127
  Receipt Date: 20181127
  Transmission Date: 20190205
  Serious: Yes (Other)
  Sender: FDA-Public Use
  Company Number: US-ROCHE-2219467

PATIENT
  Age: 46 Year
  Sex: Female
  Weight: 95.34 kg

DRUGS (2)
  1. RITUXAN [Suspect]
     Active Substance: RITUXIMAB
     Dosage: SECOND DOSE
     Route: 065
     Dates: start: 20170519
  2. RITUXAN [Suspect]
     Active Substance: RITUXIMAB
     Indication: MULTIPLE SCLEROSIS
     Dosage: ONGOING: UNKNOWN
     Route: 065
     Dates: start: 20170505

REACTIONS (7)
  - Off label use [Unknown]
  - Foot fracture [Recovering/Resolving]
  - Dyslexia [Unknown]
  - Nervousness [Unknown]
  - Sneezing [Unknown]
  - Intentional product use issue [Unknown]
  - Fatigue [Unknown]

NARRATIVE: CASE EVENT DATE: 20180815
